FAERS Safety Report 19150274 (Version 1)
Quarter: 2021Q2

REPORT INFORMATION
  Report Type: Spontaneous
  Country: HR (occurrence: HR)
  Receive Date: 20210418
  Receipt Date: 20210418
  Transmission Date: 20210717
  Serious: Yes (Other)
  Sender: FDA-Public Use
  Company Number: HR-JNJFOC-20210423106

PATIENT
  Age: 78 Year
  Sex: Female
  Weight: 55 kg

DRUGS (7)
  1. BISOPROLOL [Concomitant]
     Active Substance: BISOPROLOL
     Dosage: DAILY DOSE 2.5 MG
  2. ALPRAZOLAM. [Concomitant]
     Active Substance: ALPRAZOLAM
     Dosage: DAILY DOSE .5 MG
  3. FUROSEMID [FUROSEMIDE] [Concomitant]
     Active Substance: FUROSEMIDE
     Dosage: 40 MG
  4. XARELTO [Suspect]
     Active Substance: RIVAROXABAN
     Indication: ATRIAL FIBRILLATION
     Dosage: 20 MG, QD
     Route: 048
  5. AMLODIPINE;INDAPAMIDE;PERINDOPRIL [Concomitant]
     Active Substance: AMLODIPINE\INDAPAMIDE\PERINDOPRIL
     Dosage: 4/1.25/5 MG
  6. INSULIN [Concomitant]
     Active Substance: INSULIN NOS
  7. ATORVASTATIN [Concomitant]
     Active Substance: ATORVASTATIN
     Dosage: DAILY DOSE 20 MG

REACTIONS (5)
  - Blood pressure increased [Unknown]
  - Headache [Unknown]
  - Renal failure [Unknown]
  - Pulmonary oedema [Unknown]
  - Dyspnoea [Unknown]
